FAERS Safety Report 15404031 (Version 1)
Quarter: 2018Q3

REPORT INFORMATION
  Report Type: Spontaneous
  Country: US (occurrence: US)
  Receive Date: 20180919
  Receipt Date: 20180919
  Transmission Date: 20181010
  Serious: No
  Sender: FDA-Public Use
  Company Number: US-AVADEL SPECIALTY PHARMACEUTICALS, LLC-2018AVA00134

PATIENT
  Age: 76 Year
  Sex: Male

DRUGS (1)
  1. NOCTIVA [Suspect]
     Active Substance: DESMOPRESSIN ACETATE
     Dosage: 1 DOSAGE UNITS, 1X/DAY 30 MINUTES BEFORE BED
     Route: 045
     Dates: start: 201806, end: 201806

REACTIONS (3)
  - Nasal discomfort [Unknown]
  - Sinusitis [Unknown]
  - Paranasal sinus discomfort [Unknown]

NARRATIVE: CASE EVENT DATE: 201806
